FAERS Safety Report 14914707 (Version 1)
Quarter: 2018Q2

REPORT INFORMATION
  Report Type: Spontaneous
  Country: US (occurrence: US)
  Receive Date: 20180518
  Receipt Date: 20180518
  Transmission Date: 20180711
  Serious: Yes (Death, Hospitalization)
  Sender: FDA-Public Use
  Company Number: US-ARBOR PHARMACEUTICALS, LLC-US-2018ARB000571

PATIENT
  Sex: Male

DRUGS (1)
  1. HORIZANT [Suspect]
     Active Substance: GABAPENTIN ENACARBIL
     Indication: RESTLESS LEGS SYNDROME
     Dosage: UNK
     Dates: start: 201802

REACTIONS (3)
  - Hypoxia [Fatal]
  - Alveolitis allergic [Unknown]
  - Lung disorder [Unknown]

NARRATIVE: CASE EVENT DATE: 2018
